FAERS Safety Report 5965303-8 (Version None)
Quarter: 2008Q4

REPORT INFORMATION
  Report Type: 
  Country: None (occurrence: None)
  Receive Date: 20081125
  Receipt Date: 20081113
  Transmission Date: 20090506
  Serious: Yes (Other)
  Sender: FDA-Public Use
  Company Number: US-ROCHE-597170

PATIENT
  Sex: Female
  Weight: 49.9 kg

DRUGS (1)
  1. CAPECITABINE [Suspect]
     Indication: BREAST CANCER
     Dosage: 1000 MG IN MORNING AND 500 MG IN EVENING
     Route: 065
     Dates: end: 20081101

REACTIONS (1)
  - BREAST CANCER [None]
